FAERS Safety Report 15305649 (Version 2)
Quarter: 2018Q3

REPORT INFORMATION
  Report Type: Spontaneous
  Country: US (occurrence: US)
  Receive Date: 20180822
  Receipt Date: 20180830
  Transmission Date: 20181010
  Serious: Yes (Hospitalization, Other)
  Sender: FDA-Public Use
  Company Number: US-ACCORD-070956

PATIENT
  Age: 60 Year
  Sex: Male

DRUGS (14)
  1. LYPRESSIN [Concomitant]
     Active Substance: LYPRESSIN
     Indication: VASOPRESSIVE THERAPY
  2. HYDROCORTISONE. [Concomitant]
     Active Substance: HYDROCORTISONE
     Indication: STEROID THERAPY
     Dosage: 100 MG TID
  3. TACROLIMUS. [Interacting]
     Active Substance: TACROLIMUS
     Indication: PRODUCT USED FOR UNKNOWN INDICATION
     Dosage: 0.5 MG BID
  4. METRONIDAZOLE. [Concomitant]
     Active Substance: METRONIDAZOLE
     Indication: SEPTIC SHOCK
  5. LEVETIRACETAM. [Suspect]
     Active Substance: LEVETIRACETAM
     Indication: PRODUCT USED FOR UNKNOWN INDICATION
  6. VORICONAZOLE. [Interacting]
     Active Substance: VORICONAZOLE
     Indication: SEPTIC SHOCK
  7. TOBRAMYCIN. [Concomitant]
     Active Substance: TOBRAMYCIN
     Indication: SEPTIC SHOCK
  8. EPINEPHRINE. [Concomitant]
     Active Substance: EPINEPHRINE
     Indication: VASOPRESSIVE THERAPY
  9. MEROPENEM. [Concomitant]
     Active Substance: MEROPENEM
     Indication: EVIDENCE BASED TREATMENT
  10. CEFEPIME [Concomitant]
     Active Substance: CEFEPIME HYDROCHLORIDE
     Indication: EVIDENCE BASED TREATMENT
  11. NOREPINEPHRINE. [Concomitant]
     Active Substance: NOREPINEPHRINE
     Indication: VASOPRESSIVE THERAPY
  12. PHENYLEPHRINE [Concomitant]
     Active Substance: PHENYLEPHRINE\PHENYLEPHRINE HYDROCHLORIDE
     Indication: VASOPRESSIVE THERAPY
  13. ACICLOVIR [Concomitant]
     Active Substance: ACYCLOVIR
     Indication: SEPTIC SHOCK
  14. VANCOMYCIN [Concomitant]
     Active Substance: VANCOMYCIN
     Indication: SEPTIC SHOCK

REACTIONS (8)
  - Hypotension [Unknown]
  - Respiratory failure [Unknown]
  - Drug interaction [Unknown]
  - Pseudomonas infection [Unknown]
  - Drug level increased [Recovered/Resolved]
  - Septic shock [Unknown]
  - Accidental overdose [Unknown]
  - Abdominal tenderness [Unknown]
